FAERS Safety Report 6457164-8 (Version None)
Quarter: 2009Q4

REPORT INFORMATION
  Report Type: 
  Country: None (occurrence: None)
  Receive Date: 20091120
  Receipt Date: 20091107
  Transmission Date: 20100525
  Serious: Yes (Hospitalization)
  Sender: FDA-Public Use
  Company Number: CIP09003147

PATIENT
  Sex: Female

DRUGS (1)
  1. ASACOL [Suspect]
     Dosage: 800 MG THREE TIMES DAILY, ORAL
     Route: 048
     Dates: end: 20081101

REACTIONS (1)
  - HAEMORRHAGE [None]
